FAERS Safety Report 8348293-2 (Version None)
Quarter: 2012Q2

REPORT INFORMATION
  Report Type: 
  Country: None (occurrence: None)
  Receive Date: 20120509
  Receipt Date: 20120504
  Transmission Date: 20120825
  Serious: Yes (Other)
  Sender: FDA-Public Use
  Company Number: ES-ABBOTT-12P-144-0932654-00

PATIENT
  Age: 30 Year
  Sex: Male

DRUGS (2)
  1. AZATHIOPRINE [Concomitant]
     Indication: CROHN'S DISEASE
     Dates: end: 20111101
  2. HUMIRA [Suspect]
     Indication: CROHN'S DISEASE
     Route: 058
     Dates: end: 20111101

REACTIONS (1)
  - CENTRAL NERVOUS SYSTEM LYMPHOMA [None]
